FAERS Safety Report 4684108-1 (Version None)
Quarter: 2005Q2

REPORT INFORMATION
  Report Type: 
  Country: None (occurrence: None)
  Receive Date: 20050525
  Receipt Date: 20050408
  Transmission Date: 20051028
  Serious: Yes (Death)
  Sender: FDA-Public Use
  Company Number: HR-JNJFOC-20050403856

PATIENT
  Age: 72 Year
  Sex: Female

DRUGS (1)
  1. TRAMADOL HCL (TRAMADOL HYDROCHLORIDE) SUSTAINED RELEASE TABLETS [Suspect]
     Dosage: 100 MG, 2 IN 1 DAY, ORAL
     Route: 048

REACTIONS (2)
  - COMPLETED SUICIDE [None]
  - INTENTIONAL MISUSE [None]
